FAERS Safety Report 7663452-X (Version None)
Quarter: 2011Q3

REPORT INFORMATION
  Report Type: 
  Country: None (occurrence: None)
  Receive Date: 20110805
  Receipt Date: 20100802
  Transmission Date: 20111222
  Serious: No
  Sender: FDA-Public Use
  Company Number: US-ABBOTT-10P-163-0659939-00

PATIENT
  Sex: Male
  Weight: 113.5 kg

DRUGS (3)
  1. NIASPAN [Suspect]
     Indication: HIGH DENSITY LIPOPROTEIN DECREASED
  2. LACTASE [Concomitant]
     Indication: LACTOSE INTOLERANCE
  3. VIT D [Concomitant]
     Indication: VITAMIN D DEFICIENCY

REACTIONS (2)
  - ABNORMAL DREAMS [None]
  - SKIN BURNING SENSATION [None]
